FAERS Safety Report 13562978 (Version 2)
Quarter: 2019Q2

REPORT INFORMATION
  Report Type: Spontaneous
  Country: US (occurrence: US)
  Receive Date: 20170519
  Receipt Date: 20190627
  Transmission Date: 20190711
  Serious: Yes (Death, Other)
  Sender: FDA-Public Use
  Company Number: US-ALEXION-A201705239

PATIENT
  Age: 47 Year
  Sex: Female

DRUGS (1)
  1. SOLIRIS [Suspect]
     Active Substance: ECULIZUMAB
     Indication: HAEMOLYTIC URAEMIC SYNDROME
     Dosage: UNK
     Route: 042

REACTIONS (8)
  - Blood creatinine increased [Unknown]
  - Malignant hypertension [Unknown]
  - Thrombotic microangiopathy [Unknown]
  - Platelet count decreased [Unknown]
  - Haemolytic uraemic syndrome [Unknown]
  - Cardiac arrest [Fatal]
  - Blood lactate dehydrogenase increased [Unknown]
  - Left ventricular hypertrophy [Unknown]
